FAERS Safety Report 19507019 (Version 2)
Quarter: 2021Q3

REPORT INFORMATION
  Report Type: Report from Study
  Country: GT (occurrence: GT)
  Receive Date: 20210708
  Receipt Date: 20210713
  Transmission Date: 20211014
  Serious: No
  Sender: FDA-Public Use
  Company Number: GT-EISAI MEDICAL RESEARCH-EC-2021-095662

PATIENT
  Age: 31 Year
  Sex: Female
  Weight: 56.2 kg

DRUGS (4)
  1. LENVATINIB [Suspect]
     Active Substance: LENVATINIB
     Indication: RENAL CELL CARCINOMA
     Route: 048
     Dates: start: 20210603, end: 20210623
  2. BELZUTIFAN. [Suspect]
     Active Substance: BELZUTIFAN
     Indication: RENAL CELL CARCINOMA
     Route: 048
     Dates: start: 20210603, end: 20210616
  3. PEMBROLIZUMAB. [Suspect]
     Active Substance: PEMBROLIZUMAB
     Indication: RENAL CELL CARCINOMA
     Route: 042
     Dates: start: 20210603, end: 20210603
  4. ACETAMINOPHEN. [Concomitant]
     Active Substance: ACETAMINOPHEN
     Dates: start: 20210610, end: 20210610

REACTIONS (1)
  - Hypoxia [Recovered/Resolved]

NARRATIVE: CASE EVENT DATE: 20210617
